FAERS Safety Report 7200431-0 (Version None)
Quarter: 2010Q4

REPORT INFORMATION
  Report Type: 
  Country: None (occurrence: None)
  Receive Date: 20101228
  Receipt Date: 20101216
  Transmission Date: 20110411
  Serious: Yes (Hospitalization)
  Sender: FDA-Public Use
  Company Number: JP-MERCK-1011USA03496

PATIENT
  Age: 45 Year
  Sex: Male
  Weight: 81 kg

DRUGS (8)
  1. PEPCID [Suspect]
     Indication: DUODENAL ULCER
     Route: 048
     Dates: start: 20090401, end: 20090401
  2. SAWACILLIN [Suspect]
     Indication: HELICOBACTER INFECTION
     Route: 048
     Dates: start: 20090401, end: 20090401
  3. KLARICID [Suspect]
     Indication: HELICOBACTER INFECTION
     Route: 048
     Dates: start: 20090402, end: 20090408
  4. OMEPRAL [Suspect]
     Indication: DUODENAL ULCER
     Route: 048
     Dates: start: 20090303, end: 20090331
  5. OMEPRAL [Suspect]
     Route: 048
     Dates: start: 20090402, end: 20090408
  6. OMEPRAL [Suspect]
     Indication: HELICOBACTER INFECTION
     Route: 048
     Dates: start: 20090303, end: 20090331
  7. OMEPRAL [Suspect]
     Route: 048
     Dates: start: 20090402, end: 20090408
  8. GASTROM [Concomitant]
     Route: 065
     Dates: start: 20090402, end: 20090408

REACTIONS (1)
  - HEPATIC FUNCTION ABNORMAL [None]
